FAERS Safety Report 9328271 (Version 3)
Quarter: 2013Q3

REPORT INFORMATION
  Report Type: Spontaneous
  Country: US (occurrence: US)
  Receive Date: 20130604
  Receipt Date: 20130715
  Transmission Date: 20140515
  Serious: No
  Sender: FDA-Public Use
  Company Number: US-PFIZER INC-2013164465

PATIENT
  Age: 67 Year
  Sex: Male

DRUGS (5)
  1. VIAGRA [Suspect]
     Indication: ERECTILE DYSFUNCTION
     Dosage: 100 MG, AS NEEDED (1 OR 1/2 PRN OF 100 MG TAB)
     Route: 048
  2. CLOPIDOGREL [Concomitant]
     Dosage: 75 MG, 1X/DAY (DAILY)
     Dates: start: 20130206
  3. ATORVASTATIN [Concomitant]
     Dosage: 40 MG, 1X/DAY (80MG, 1/2 TAB AT BEDTIME)
     Dates: start: 20130206
  4. NIASPAN [Concomitant]
     Dosage: 2000 MG, 1X/DAY (2 BEDTIME)
     Dates: start: 20130206
  5. FOSINOPRIL [Concomitant]
     Dosage: 20 MG, 1X/DAY (40MG, 1/2 DAILY)
     Dates: start: 20130206

REACTIONS (3)
  - Drug ineffective [Unknown]
  - Flushing [Recovered/Resolved]
  - Headache [Recovered/Resolved]
